FAERS Safety Report 14489926 (Version 1)
Quarter: 2018Q1

REPORT INFORMATION
  Report Type: Spontaneous
  Country: US (occurrence: US)
  Receive Date: 20180206
  Receipt Date: 20180206
  Transmission Date: 20180509
  Serious: Yes (Death, Hospitalization)
  Sender: FDA-Public Use
  Company Number: US-UNICHEM PHARMACEUTICALS (USA) INC-UCM201802-000024

PATIENT
  Age: 51 Year
  Sex: Male

DRUGS (10)
  1. DOPAMINE [Concomitant]
     Active Substance: DOPAMINE\DOPAMINE HYDROCHLORIDE
  2. HYDROCORTISONE. [Concomitant]
     Active Substance: HYDROCORTISONE
  3. AMLODIPINE BESYLATE 10MG TABLETS [Suspect]
     Active Substance: AMLODIPINE BESYLATE
     Dosage: 50 TABLETS
  4. SODIUM BICARBONATE. [Concomitant]
     Active Substance: SODIUM BICARBONATE
  5. DOBUTAMINE [Concomitant]
     Active Substance: DOBUTAMINE\DOBUTAMINE HYDROCHLORIDE
  6. NOREPINEPHRINE. [Concomitant]
     Active Substance: NOREPINEPHRINE
  7. EPINEPHRINE. [Concomitant]
     Active Substance: EPINEPHRINE
  8. INSULIN [Concomitant]
     Active Substance: INSULIN NOS
  9. VASOPRESSIN. [Concomitant]
     Active Substance: VASOPRESSIN
  10. CALCIUM CHLORIDE. [Concomitant]
     Active Substance: CALCIUM CHLORIDE

REACTIONS (8)
  - Multiple organ dysfunction syndrome [Not Recovered/Not Resolved]
  - Electrolyte imbalance [Not Recovered/Not Resolved]
  - Intentional overdose [Fatal]
  - Completed suicide [Fatal]
  - Peripheral ischaemia [Not Recovered/Not Resolved]
  - Pulmonary oedema [Not Recovered/Not Resolved]
  - Hypotension [Not Recovered/Not Resolved]
  - Pupillary reflex impaired [Not Recovered/Not Resolved]
